FAERS Safety Report 23124037 (Version 2)
Quarter: 2023Q4

REPORT INFORMATION
  Report Type: Spontaneous
  Country: GB (occurrence: GB)
  Receive Date: 20231030
  Receipt Date: 20231114
  Transmission Date: 20240110
  Serious: No
  Sender: FDA-Public Use
  Company Number: GB-PFIZER INC-PV202300161396

PATIENT
  Age: 89 Year
  Sex: Female

DRUGS (1)
  1. SOMAVERT [Suspect]
     Active Substance: PEGVISOMANT
     Dosage: 40 MG
     Route: 058

REACTIONS (3)
  - Syringe issue [Unknown]
  - Device leakage [Unknown]
  - Needle issue [Unknown]
